FAERS Safety Report 9191298 (Version 2)
Quarter: 2013Q3

REPORT INFORMATION
  Report Type: Report from Study
  Country: US (occurrence: US)
  Receive Date: 20130326
  Receipt Date: 20130725
  Transmission Date: 20140515
  Serious: Yes (Hospitalization)
  Sender: FDA-Public Use
  Company Number: US-BRISTOL-MYERS SQUIBB COMPANY-18711523

PATIENT
  Age: 56 Year
  Sex: Male

DRUGS (29)
  1. NIVOLUMAB [Suspect]
     Indication: NON-SMALL CELL LUNG CANCER
     Dosage: NO OF COURSES 2, DOSE 242 MG, CYC 2 08MAR13?INTERRUPTED 8MAR13
     Route: 042
     Dates: start: 20130215
  2. IPILIMUMAB [Suspect]
     Indication: NON-SMALL CELL LUNG CANCER
     Dosage: NO OF COURSES 2, DOSE 81 MG, CYC 2 08MAR13?INTERRUPTED 8MAR13
     Route: 042
     Dates: start: 20130215
  3. NEURONTIN [Concomitant]
     Indication: BACK PAIN
     Route: 048
     Dates: start: 2002
  4. NEURONTIN [Concomitant]
     Indication: PAIN IN EXTREMITY
     Route: 048
     Dates: start: 2002
  5. ECOTRIN [Concomitant]
     Indication: CARDIOVASCULAR EVENT PROPHYLAXIS
     Route: 048
     Dates: start: 2003
  6. ZOLOFT [Concomitant]
     Indication: DEPRESSION
     Route: 048
     Dates: start: 2007
  7. CENTRUM SILVER [Concomitant]
     Indication: ROUTINE HEALTH MAINTENANCE
     Route: 048
     Dates: start: 2000
  8. VITAMIN D [Concomitant]
     Indication: ROUTINE HEALTH MAINTENANCE
     Route: 048
     Dates: start: 2010
  9. VITAMIN C [Concomitant]
     Indication: ROUTINE HEALTH MAINTENANCE
     Route: 048
     Dates: start: 2010
  10. ZYRTEC [Concomitant]
     Indication: RHINITIS ALLERGIC
     Route: 048
     Dates: start: 2000
  11. SINGULAIR [Concomitant]
     Indication: RHINITIS ALLERGIC
     Dosage: 10 MG DAILY PRN
     Route: 048
     Dates: start: 2000
  12. PREVACID [Concomitant]
     Indication: GASTROOESOPHAGEAL REFLUX DISEASE
     Route: 048
     Dates: start: 20130128
  13. FLOMAX [Concomitant]
     Indication: BENIGN PROSTATIC HYPERPLASIA
     Route: 048
     Dates: start: 2010
  14. VICODIN [Concomitant]
     Indication: BACK PAIN
     Dosage: 5/500 MG
     Route: 048
     Dates: start: 2002
  15. ATIVAN [Concomitant]
     Indication: ANXIETY
     Route: 048
     Dates: start: 2008
  16. MELATONIN [Concomitant]
     Indication: SLEEP DISORDER
     Route: 048
     Dates: start: 2010
  17. MUCINEX [Concomitant]
     Indication: NASAL CONGESTION
     Route: 048
  18. AZITHROMYCIN [Concomitant]
     Indication: SINUSITIS
     Dosage: 2 TAB DAY 1
     Route: 048
     Dates: start: 20130318, end: 20130321
  19. GAS-X [Concomitant]
     Indication: DYSPEPSIA
     Dosage: DOSE 2-3 TIMES PER DAY
     Route: 048
     Dates: start: 2013
  20. GAS-X [Concomitant]
     Indication: FLATULENCE
     Dosage: DOSE 2-3 TIMES PER DAY
     Route: 048
     Dates: start: 2013
  21. BACTRIM [Concomitant]
     Indication: ANTIBIOTIC THERAPY
     Dosage: 1DF=1 TAB
     Route: 048
     Dates: start: 20130325
  22. VORICONAZOLE [Concomitant]
     Indication: ANTIFUNGAL TREATMENT
     Dosage: 1 DF=1 TAB
     Route: 048
     Dates: start: 20130325
  23. ALLEGRA [Concomitant]
     Indication: RHINITIS ALLERGIC
     Dosage: PRN
     Route: 048
     Dates: start: 20130410
  24. OXYCONTIN [Concomitant]
     Indication: PAIN
     Route: 048
     Dates: start: 20130327
  25. ALBUTEROL [Concomitant]
     Indication: DYSPNOEA
     Dosage: 1 DF=2 PUFFS PRN
     Route: 055
     Dates: start: 20130325
  26. TRAZODONE HCL [Concomitant]
     Indication: SLEEP DISORDER
     Dosage: 1 DF=2 TABS, QHS, PRN
     Route: 048
     Dates: start: 20130411
  27. COLACE [Concomitant]
     Indication: DIARRHOEA
     Route: 048
     Dates: start: 20130321
  28. DILAUDID [Concomitant]
     Indication: BACK PAIN
     Dosage: (5 PER DAY) PRN
     Route: 048
     Dates: start: 20130321
  29. SENNA [Concomitant]
     Indication: DIARRHOEA
     Dosage: 1 DF=2 TABS
     Route: 048
     Dates: start: 20130327

REACTIONS (1)
  - Pneumonitis [Recovered/Resolved with Sequelae]
